FAERS Safety Report 7338734-1 (Version None)
Quarter: 2011Q1

REPORT INFORMATION
  Report Type: 
  Country: None (occurrence: None)
  Receive Date: 20110308
  Receipt Date: 20110224
  Transmission Date: 20110831
  Serious: Yes (Death, Other)
  Sender: FDA-Public Use
  Company Number: B0703927A

PATIENT
  Sex: Female

DRUGS (3)
  1. PREDNISONE TAB [Suspect]
     Indication: MULTIPLE MYELOMA
     Dosage: 130MG PER DAY
     Route: 048
     Dates: start: 20080130, end: 20081013
  2. MELPHALAN [Suspect]
     Indication: MULTIPLE MYELOMA
     Dosage: 12MG PER DAY
     Route: 048
     Dates: start: 20080130, end: 20081013
  3. BLINDED STUDY MEDICATION [Suspect]
     Indication: MULTIPLE MYELOMA
     Dosage: 10MG PER DAY
     Route: 048
     Dates: start: 20080131, end: 20081129

REACTIONS (1)
  - CHRONIC MYELOMONOCYTIC LEUKAEMIA [None]
